FAERS Safety Report 9962926 (Version 2)
Quarter: 2014Q1

REPORT INFORMATION
  Report Type: Report from Study
  Country: US (occurrence: US)
  Receive Date: 20140305
  Receipt Date: 20140305
  Transmission Date: 20141002
  Serious: No
  Sender: FDA-Public Use
  Company Number: US-ABBVIE-13P-163-1103070-00

PATIENT
  Age: 55 Year
  Sex: Female

DRUGS (7)
  1. HUMIRA [Suspect]
     Indication: RHEUMATOID ARTHRITIS
     Dates: start: 20130606, end: 20130620
  2. JUICE PLUS [Concomitant]
     Indication: NUTRITIONAL SUPPLEMENTATION
  3. SYNTHYROID [Concomitant]
     Indication: THYROID DISORDER
  4. ZOLOFT [Concomitant]
     Indication: DEPRESSION
  5. IBUPROFEN [Concomitant]
     Indication: RHEUMATOID ARTHRITIS
  6. CALCIUM [Concomitant]
     Indication: MINERAL SUPPLEMENTATION
     Dosage: UNKNOWN DOSE DAILY
  7. MILK THISTLE [Concomitant]
     Indication: SUPPLEMENTATION THERAPY
     Dosage: UNKNOWN DOSE DAILY

REACTIONS (6)
  - Feeling abnormal [Not Recovered/Not Resolved]
  - Injection site urticaria [Recovering/Resolving]
  - Drug ineffective [Unknown]
  - Arthralgia [Not Recovered/Not Resolved]
  - Injection site mass [Recovering/Resolving]
  - Injection site bruising [Not Recovered/Not Resolved]
